FAERS Safety Report 5705083-4 (Version None)
Quarter: 2008Q2

REPORT INFORMATION
  Report Type: 
  Country: None (occurrence: None)
  Receive Date: 20080410
  Receipt Date: 20080327
  Transmission Date: 20081010
  Serious: Yes (Other)
  Sender: FDA-Public Use
  Company Number: 2008000586

PATIENT
  Age: 77 Year
  Sex: Female

DRUGS (5)
  1. TARCEVA [Suspect]
     Indication: NON-SMALL CELL LUNG CANCER
     Dosage: (150 MG, QD), ORAL
     Route: 048
  2. PROZAC [Concomitant]
  3. DETROL [Concomitant]
  4. WARFARIN SODIUM [Concomitant]
  5. PRILOSEC [Concomitant]

REACTIONS (2)
  - AMNESIA [None]
  - DEAFNESS [None]
